FAERS Safety Report 12202628 (Version 1)
Quarter: 2016Q1

REPORT INFORMATION
  Report Type: Spontaneous
  Country: None (occurrence: US)
  Receive Date: 20160322
  Receipt Date: 20160322
  Transmission Date: 20160526
  Serious: No
  Sender: FDA-Public Use
  Company Number: US-MATRIXX INITIATIVES, INC.-1049449

PATIENT
  Age: 90 Year
  Sex: Male
  Weight: 72.73 kg

DRUGS (10)
  1. CINNAMON WITH CHROMIUM [Concomitant]
  2. VITAMIN C [Concomitant]
     Active Substance: ASCORBIC ACID
  3. ZICAM COLD REMEDY RAPIDMELTS [Suspect]
     Active Substance: ZINC ACETATE ANHYDROUS\ZINC GLUCONATE
     Indication: NASOPHARYNGITIS
     Route: 048
     Dates: start: 20160307, end: 20160311
  4. ZINC SUPPLEMENT [Concomitant]
  5. ASPIRIN. [Concomitant]
     Active Substance: ASPIRIN
  6. RAMIPRIL. [Concomitant]
     Active Substance: RAMIPRIL
  7. ALBUTEROL. [Concomitant]
     Active Substance: ALBUTEROL
  8. ATENOLOL. [Concomitant]
     Active Substance: ATENOLOL
  9. MULTIVITAMIN [Concomitant]
     Active Substance: VITAMINS
  10. VITAMIN D [Concomitant]
     Active Substance: CHOLECALCIFEROL

REACTIONS (1)
  - Ageusia [Not Recovered/Not Resolved]
